FAERS Safety Report 9296087 (Version 1)
Quarter: 2013Q2

REPORT INFORMATION
  Report Type: Spontaneous
  Country: US (occurrence: US)
  Receive Date: 20130517
  Receipt Date: 20130517
  Transmission Date: 20140414
  Serious: No
  Sender: FDA-Public Use
  Company Number: US-TARO-2013P1002987

PATIENT
  Age: 77 Year
  Sex: Female

DRUGS (7)
  1. NYSTATIN + TRIAMCINOLONE ACETONIDE OINTMENT [Suspect]
     Indication: VULVOVAGINAL DISCOMFORT
     Route: 061
     Dates: start: 20121120, end: 201211
  2. NYSTATIN + TRIAMCINOLONE ACETONIDE OINTMENT [Suspect]
     Indication: VULVOVAGINAL DISCOMFORT
     Route: 061
     Dates: start: 201212, end: 201212
  3. GINKGO BILOBA [Concomitant]
  4. VITAMIN D [Concomitant]
  5. RISPERIDONE [Concomitant]
  6. MEGA MSM [Concomitant]
  7. ADVAIR 100/50 [Concomitant]

REACTIONS (1)
  - Vulvovaginal pain [Recovering/Resolving]
